FAERS Safety Report 9236916 (Version 1)
Quarter: 2013Q2

REPORT INFORMATION
  Report Type: Spontaneous
  Country: IT (occurrence: IT)
  Receive Date: 20130417
  Receipt Date: 20130417
  Transmission Date: 20140414
  Serious: Yes (Other)
  Sender: FDA-Public Use
  Company Number: PHHY2013IT035940

PATIENT
  Sex: Female

DRUGS (1)
  1. TEGRETOL [Suspect]

REACTIONS (3)
  - Trigeminal neuralgia [Unknown]
  - Trismus [Unknown]
  - Muscle spasms [Unknown]
